FAERS Safety Report 8486179-3 (Version None)
Quarter: 2012Q3

REPORT INFORMATION
  Report Type: 
  Country: None (occurrence: None)
  Receive Date: 20120703
  Receipt Date: 20111025
  Transmission Date: 20120928
  Serious: Yes (Life-Threatening, Other)
  Sender: FDA-Public Use
  Company Number: JP-CELGENEUS-087-50794-11110208

PATIENT
  Sex: Male
  Weight: 52 kg

DRUGS (29)
  1. PANTOSIN [Concomitant]
     Route: 065
     Dates: start: 20110630, end: 20110630
  2. MEROPENEM [Concomitant]
     Route: 065
     Dates: start: 20110729
  3. ANTIBIOTICS [Concomitant]
     Indication: CELLULITIS
     Route: 041
     Dates: start: 20110101
  4. TAMSULOSIN HCL [Concomitant]
     Route: 065
  5. LASIX [Concomitant]
     Route: 065
     Dates: start: 20110711, end: 20110719
  6. PRIMPERAN TAB [Concomitant]
     Route: 065
     Dates: start: 20110630, end: 20110630
  7. FENTANYL-100 [Concomitant]
     Route: 065
     Dates: start: 20110807
  8. HEMOSTATIC AGENT [Concomitant]
     Indication: MELAENA
     Route: 041
     Dates: start: 20110701
  9. GRANISETRON HYDROCHLORIDE [Concomitant]
     Route: 065
     Dates: start: 20110620, end: 20110626
  10. FOLIAMIN [Concomitant]
     Route: 065
  11. ARGAMATE [Concomitant]
     Route: 065
  12. GASLON [Concomitant]
     Route: 065
  13. TANATRIL [Concomitant]
     Route: 065
  14. MECOBALAMIN [Concomitant]
     Route: 065
  15. PLETAL [Concomitant]
     Route: 065
  16. MAGMITT [Concomitant]
     Route: 065
     Dates: start: 20110627
  17. PLATELETS [Concomitant]
     Indication: MELAENA
     Route: 041
     Dates: start: 20110701
  18. CILOSTAZOL [Concomitant]
     Route: 065
  19. PRIMOBOLAN-DEPOT INJ [Concomitant]
     Route: 065
  20. BUP-4 [Concomitant]
     Route: 065
  21. NICERGOLINE [Concomitant]
     Route: 065
  22. SENNOSIDE [Concomitant]
     Route: 065
     Dates: start: 20110627
  23. ROHYPNOL [Concomitant]
     Route: 065
     Dates: start: 20110713, end: 20110809
  24. VIDAZA [Suspect]
     Dosage: 37.5 MILLIGRAM/SQ. METER
     Route: 041
     Dates: start: 20110620, end: 20110626
  25. ANTIBIOTICS [Concomitant]
     Route: 048
     Dates: start: 20110101
  26. MAXIPIME [Concomitant]
     Route: 065
     Dates: start: 20110627, end: 20110711
  27. ADONA [Concomitant]
     Route: 065
     Dates: start: 20110703, end: 20110705
  28. FUROSEMIDE [Concomitant]
     Route: 065
  29. LEVOFLOXACIN [Concomitant]
     Route: 065
     Dates: start: 20110726, end: 20110728

REACTIONS (4)
  - CELLULITIS [None]
  - PNEUMONIA [None]
  - MELAENA [None]
  - FEBRILE NEUTROPENIA [None]
